FAERS Safety Report 16137527 (Version 1)
Quarter: 2019Q2

REPORT INFORMATION
  Report Type: Spontaneous
  Country: SE (occurrence: SE)
  Receive Date: 20190401
  Receipt Date: 20190401
  Transmission Date: 20190711
  Serious: Yes (Death)
  Sender: FDA-Public Use
  Company Number: SE-ACCORD-116868

PATIENT
  Age: 90 Year
  Sex: Female

DRUGS (1)
  1. SERTRALINE [Suspect]
     Active Substance: SERTRALINE HYDROCHLORIDE
     Indication: DEPRESSION
     Dosage: 25 MG 1 X 1
     Route: 048
     Dates: start: 201812

REACTIONS (1)
  - Fall [Fatal]

NARRATIVE: CASE EVENT DATE: 201812
